FAERS Safety Report 14404765 (Version 12)
Quarter: 2019Q4

REPORT INFORMATION
  Report Type: Report from Study
  Country: CA (occurrence: CA)
  Receive Date: 20180118
  Receipt Date: 20191004
  Transmission Date: 20200122
  Serious: Yes (Hospitalization, Other)
  Sender: FDA-Public Use
  Company Number: CA-ROCHE-1862725

PATIENT
  Age: 63 Year
  Sex: Female
  Weight: 110 kg

DRUGS (20)
  1. TYLENOL [Concomitant]
     Active Substance: ACETAMINOPHEN
     Indication: PREMEDICATION
     Route: 048
     Dates: start: 20161130
  2. LACTULOSE. [Concomitant]
     Active Substance: LACTULOSE
     Dosage: PRN
     Route: 065
  3. METHOTREXATE. [Concomitant]
     Active Substance: METHOTREXATE
  4. LANSOPRAZOLE. [Concomitant]
     Active Substance: LANSOPRAZOLE
  5. VENLAFAXINE XR [Concomitant]
     Active Substance: VENLAFAXINE HYDROCHLORIDE
  6. EUROFOLIC [Concomitant]
     Active Substance: LEVOLEUCOVORIN CALCIUM
  7. VIT D [Concomitant]
     Active Substance: VITAMIN D NOS
  8. RITUXAN [Suspect]
     Active Substance: RITUXIMAB
     Indication: RHEUMATOID ARTHRITIS
     Dosage: PREVIOUS RITUXIMAB DOSE ON 14/DEC/2016
     Route: 042
     Dates: start: 20161130
  9. PLAQUENIL [Concomitant]
     Active Substance: HYDROXYCHLOROQUINE SULFATE
  10. PREGABALIN. [Concomitant]
     Active Substance: PREGABALIN
  11. METHYLPREDNISOLONE. [Concomitant]
     Active Substance: METHYLPREDNISOLONE
     Route: 042
     Dates: start: 20161130
  12. VENTOLIN [Concomitant]
     Active Substance: ALBUTEROL SULFATE
     Dosage: PRN
     Route: 065
  13. SPIRIVA [Concomitant]
     Active Substance: TIOTROPIUM BROMIDE MONOHYDRATE
  14. DIPHENHYDRAMINE. [Concomitant]
     Active Substance: DIPHENHYDRAMINE
     Route: 065
     Dates: start: 20161130
  15. BENADRYL [Concomitant]
     Active Substance: DIPHENHYDRAMINE HYDROCHLORIDE
     Indication: PREMEDICATION
     Route: 048
     Dates: start: 20161130
  16. TEMAZEPAM. [Concomitant]
     Active Substance: TEMAZEPAM
  17. SOLU-MEDROL [Concomitant]
     Active Substance: METHYLPREDNISOLONE SODIUM SUCCINATE
     Indication: PREMEDICATION
     Route: 042
     Dates: start: 20161130
  18. ALVESCO [Concomitant]
     Active Substance: CICLESONIDE
  19. BUPROPION. [Concomitant]
     Active Substance: BUPROPION
  20. ACETAMINOPHEN. [Concomitant]
     Active Substance: ACETAMINOPHEN
     Route: 065
     Dates: start: 20161130

REACTIONS (23)
  - Arthropathy [Unknown]
  - Influenza [Recovering/Resolving]
  - Oxygen saturation decreased [Unknown]
  - Blood pressure diastolic increased [Unknown]
  - Weight increased [Unknown]
  - Cardiomyopathy [Unknown]
  - Blood pressure fluctuation [Unknown]
  - Cardiometabolic syndrome [Not Recovered/Not Resolved]
  - Abscess limb [Recovered/Resolved]
  - Back pain [Not Recovered/Not Resolved]
  - Blood pressure systolic decreased [Unknown]
  - Blood pressure diastolic abnormal [Unknown]
  - Blood pressure fluctuation [Unknown]
  - Pulmonary oedema [Recovering/Resolving]
  - Pneumonia [Recovering/Resolving]
  - Vascular rupture [Unknown]
  - Cataract [Not Recovered/Not Resolved]
  - Pain in extremity [Not Recovered/Not Resolved]
  - Respiratory tract infection viral [Unknown]
  - C-reactive protein increased [Unknown]
  - Spinal compression fracture [Unknown]
  - Hypertension [Unknown]
  - Rheumatoid nodule [Not Recovered/Not Resolved]

NARRATIVE: CASE EVENT DATE: 20161130
